FAERS Safety Report 9611781 (Version 3)
Quarter: 2013Q4

REPORT INFORMATION
  Report Type: Spontaneous
  Country: FR (occurrence: FR)
  Receive Date: 20131010
  Receipt Date: 20131025
  Transmission Date: 20140711
  Serious: Yes (Hospitalization, Other)
  Sender: FDA-Public Use
  Company Number: FR-JNJFOC-20131004016

PATIENT
  Age: 89 Year
  Sex: Female

DRUGS (15)
  1. GYNO-PEVARYL [Suspect]
     Indication: VULVOVAGINAL CANDIDIASIS
     Route: 067
     Dates: start: 20010723, end: 20010727
  2. PEVARYL [Suspect]
     Indication: VULVOVAGINAL CANDIDIASIS
     Route: 061
     Dates: start: 20010723, end: 20010723
  3. SINTROM [Interacting]
     Indication: PHLEBITIS
     Dosage: 1 MG ON DAY 1 AND 0.5 MG ON DAY 2
     Route: 048
     Dates: start: 20010729, end: 20010801
  4. SINTROM [Interacting]
     Indication: PHLEBITIS
     Route: 048
     Dates: start: 20010725, end: 20010728
  5. SINTROM [Interacting]
     Indication: PHLEBITIS
     Route: 048
     Dates: start: 20010719, end: 20010724
  6. VISKEN [Interacting]
     Indication: HYPERTENSION
     Route: 048
  7. HALDOL [Concomitant]
     Route: 065
  8. DAFALGAN [Concomitant]
     Route: 065
  9. TARDYFERON-FOL [Concomitant]
     Route: 065
  10. ESTRADERM [Concomitant]
     Route: 065
  11. NOOTROPYL [Concomitant]
     Route: 065
  12. IDEOS [Concomitant]
     Route: 065
  13. TEMESTA [Concomitant]
     Route: 065
  14. FONZYLANE [Concomitant]
     Route: 065
  15. FRAXODI [Concomitant]
     Route: 065
     Dates: start: 20010719, end: 20010724

REACTIONS (2)
  - International normalised ratio increased [Recovering/Resolving]
  - Drug interaction [Recovering/Resolving]
